FAERS Safety Report 7312501-7 (Version None)
Quarter: 2011Q1

REPORT INFORMATION
  Report Type: 
  Country: None (occurrence: None)
  Receive Date: 20110224
  Receipt Date: 20110221
  Transmission Date: 20110831
  Serious: Yes (Hospitalization)
  Sender: FDA-Public Use
  Company Number: US-ABBOTT-10P-163-0665081-00

PATIENT
  Sex: Male
  Weight: 90.8 kg

DRUGS (5)
  1. METHOTREXATE [Concomitant]
     Indication: RHEUMATOID ARTHRITIS
  2. PREDNISONE [Concomitant]
     Indication: RHEUMATOID ARTHRITIS
  3. AMBIEN CR [Concomitant]
     Indication: INSOMNIA
  4. HUMIRA [Suspect]
     Indication: RHEUMATOID ARTHRITIS
     Dates: start: 20050101, end: 20090601
  5. LIPITOR [Concomitant]
     Indication: HYPERLIPIDAEMIA

REACTIONS (12)
  - ABASIA [None]
  - INFECTION [None]
  - MYOCARDIAL INFARCTION [None]
  - ARTHRALGIA [None]
  - PNEUMONIA [None]
  - SYNCOPE [None]
  - RENAL FAILURE [None]
  - MALAISE [None]
  - CARDIAC ARREST [None]
  - ACUTE RESPIRATORY DISTRESS SYNDROME [None]
  - IRRITABILITY [None]
  - WEIGHT DECREASED [None]
